FAERS Safety Report 7180408-4 (Version None)
Quarter: 2010Q4

REPORT INFORMATION
  Report Type: 
  Country: None (occurrence: None)
  Receive Date: 20101209
  Receipt Date: 20101126
  Transmission Date: 20110411
  Serious: Yes (Other)
  Sender: FDA-Public Use
  Company Number: 2010AP002498

PATIENT
  Age: 77 Year
  Sex: Female

DRUGS (6)
  1. MIRTAZAPINE [Suspect]
     Indication: DEPRESSION
     Dosage: 7.5 MG, QD; 15 MG, QD; 7.5 MG, PM
  2. METOPROLOL [Concomitant]
  3. ATORVASTATIN [Concomitant]
  4. MULTI-VITAMINS [Concomitant]
  5. CALCIUM [Concomitant]
  6. ALENDRONIC ACID [Concomitant]

REACTIONS (4)
  - CONDITION AGGRAVATED [None]
  - DEPRESSION [None]
  - HALLUCINATION, VISUAL [None]
  - THERAPY REGIMEN CHANGED [None]
